FAERS Safety Report 6080078-2 (Version None)
Quarter: 2009Q1

REPORT INFORMATION
  Report Type: 
  Country: None (occurrence: None)
  Receive Date: 20090217
  Receipt Date: 20090206
  Transmission Date: 20090719
  Serious: Yes (Hospitalization, Other)
  Sender: FDA-Public Use
  Company Number: US-PFIZER INC-2008100063

PATIENT
  Sex: Female
  Weight: 87.166 kg

DRUGS (4)
  1. SUTENT [Suspect]
     Indication: METASTATIC RENAL CELL CARCINOMA
     Dosage: 37.5 MG, 1X/DAY
     Route: 048
     Dates: start: 20051201, end: 20081101
  2. VYTORIN [Concomitant]
  3. NORVASC [Concomitant]
  4. SYNTHROID [Concomitant]

REACTIONS (3)
  - BLOOD THYROID STIMULATING HORMONE INCREASED [None]
  - CARDIAC FAILURE CONGESTIVE [None]
  - CARDIOMYOPATHY [None]
